FAERS Safety Report 6979988-0 (Version None)
Quarter: 2010Q3

REPORT INFORMATION
  Report Type: 
  Country: None (occurrence: None)
  Receive Date: 20100914
  Receipt Date: 20100905
  Transmission Date: 20110219
  Serious: Yes (Hospitalization)
  Sender: FDA-Public Use
  Company Number: EG-BAYER-201037698GPV

PATIENT
  Age: 24 Year
  Sex: Female
  Weight: 65 kg

DRUGS (1)
  1. YASMIN [Suspect]
     Indication: CONTRACEPTION
     Dates: start: 20090901, end: 20091101

REACTIONS (2)
  - BRAIN OEDEMA [None]
  - LYMPHATIC OBSTRUCTION [None]
